FAERS Safety Report 7730074-1 (Version None)
Quarter: 2011Q3

REPORT INFORMATION
  Report Type: 
  Country: None (occurrence: None)
  Receive Date: 20110906
  Receipt Date: 20110826
  Transmission Date: 20111222
  Serious: Yes (Other)
  Sender: FDA-Public Use
  Company Number: PHEH2011US02663

PATIENT
  Sex: Female

DRUGS (9)
  1. CARVEDILOL [Concomitant]
  2. LETROZOLE [Suspect]
  3. SPIRONOLACTONE [Concomitant]
  4. TRIAMCINOLONE ACETONIDE [Concomitant]
  5. PRAVASTATIN [Concomitant]
  6. LISINOPRIL [Concomitant]
  7. FEMARA [Suspect]
     Dosage: 2.5 MG, QD
  8. PREDNISONE [Concomitant]
  9. ROSUVASTATIN [Concomitant]

REACTIONS (6)
  - ECZEMA WEEPING [None]
  - BLISTER [None]
  - OEDEMA PERIPHERAL [None]
  - SKIN ULCER [None]
  - FEELING HOT [None]
  - MASS [None]
